FAERS Safety Report 20372195 (Version 1)
Quarter: 2022Q1

REPORT INFORMATION
  Report Type: Spontaneous
  Country: CN (occurrence: CN)
  Receive Date: 20220124
  Receipt Date: 20220124
  Transmission Date: 20220423
  Serious: Yes (Hospitalization, Other)
  Sender: FDA-Public Use
  Company Number: CN-BAXTER-2022BAX001439

PATIENT
  Age: 52 Year
  Sex: Female
  Weight: 53 kg

DRUGS (8)
  1. CYCLOPHOSPHAMIDE [Suspect]
     Active Substance: CYCLOPHOSPHAMIDE
     Indication: Breast cancer female
     Dosage: FIRST CYCLE OF CHEMOTHERAPY
     Route: 041
  2. CYCLOPHOSPHAMIDE [Suspect]
     Active Substance: CYCLOPHOSPHAMIDE
     Dosage: 0.9% SODIUM CHLORIDE INJECTION (100 ML) + CYCLOPHOSPHAMIDE FOR INJECTION (IMPORTED) (800 MG), ST, D1
     Route: 041
     Dates: start: 20220105, end: 20220105
  3. SODIUM CHLORIDE [Suspect]
     Active Substance: SODIUM CHLORIDE
     Indication: Medication dilution
     Dosage: FIRST CYCLE OF CHEMOTHERAPY
     Route: 041
  4. SODIUM CHLORIDE [Suspect]
     Active Substance: SODIUM CHLORIDE
     Dosage: 0.9% SODIUM CHLORIDE INJECTION (100 ML) + CYCLOPHOSPHAMIDE FOR INJECTION (IMPORTED) (800 MG), ST, D1
     Route: 041
     Dates: start: 20220105
  5. DEXTROSE [Suspect]
     Active Substance: DEXTROSE
     Indication: Medication dilution
     Dosage: FIRST CYCLE OF CHEMOTHERAPY
     Route: 041
  6. DEXTROSE [Suspect]
     Active Substance: DEXTROSE
     Dosage: 5% GLUCOSE INJECTION (100 ML) + PIRARUBICIN HYDROCHLORIDE FOR INJECTION (70 MG), ST, D1
     Route: 041
     Dates: start: 20220105
  7. PIRARUBICIN HYDROCHLORIDE [Suspect]
     Active Substance: PIRARUBICIN HYDROCHLORIDE
     Indication: Breast cancer female
     Dosage: FIRST CYCLE OF CHEMOTHERAPY
     Route: 041
  8. PIRARUBICIN HYDROCHLORIDE [Suspect]
     Active Substance: PIRARUBICIN HYDROCHLORIDE
     Dosage: 5% GLUCOSE INJECTION (100 ML) + PIRARUBICIN HYDROCHLORIDE FOR INJECTION (70 MG), ST, D1
     Route: 041
     Dates: start: 20220105, end: 20220105

REACTIONS (2)
  - White blood cell count decreased [Recovered/Resolved]
  - Myelosuppression [Unknown]

NARRATIVE: CASE EVENT DATE: 20220113
